FAERS Safety Report 6696975-0 (Version None)
Quarter: 2010Q2

REPORT INFORMATION
  Report Type: 
  Country: None (occurrence: None)
  Receive Date: 20100426
  Receipt Date: 20100421
  Transmission Date: 20101027
  Serious: Yes (Life-Threatening, Hospitalization)
  Sender: FDA-Public Use
  Company Number: PHHO2010US06007

PATIENT
  Age: 54 Year
  Sex: Male
  Weight: 92.517 kg

DRUGS (10)
  1. AFINITOR [Suspect]
     Indication: METASTATIC MALIGNANT MELANOMA
     Dosage: 5MG
     Route: 048
     Dates: start: 20100318, end: 20100416
  2. PACLITAXEL COMP-PAC+ [Suspect]
     Indication: METASTATIC MALIGNANT MELANOMA
     Dosage: 360MG
     Route: 042
     Dates: start: 20100318, end: 20100408
  3. CARBOPLATIN COMP-CAB+ [Suspect]
     Indication: METASTATIC MALIGNANT MELANOMA
     Dosage: 1039MG
     Route: 042
     Dates: start: 20100318, end: 20100401
  4. METOPROLOL [Concomitant]
     Indication: BLOOD PRESSURE
  5. DIGOXIN [Concomitant]
     Indication: ATRIAL FIBRILLATION
  6. TRICOR [Concomitant]
     Indication: BLOOD CHOLESTEROL
  7. METFORMIN HCL [Concomitant]
     Indication: DIABETES MELLITUS
  8. SIMVASTATIN [Concomitant]
     Indication: BLOOD CHOLESTEROL
  9. GLYBURIDE [Concomitant]
     Indication: DIABETES MELLITUS
  10. ENALAPRIL MALEATE [Concomitant]
     Indication: CARDIAC DISORDER

REACTIONS (6)
  - ANGIOEDEMA [None]
  - HYPERGLYCAEMIA [None]
  - PULMONARY MASS [None]
  - STRIDOR [None]
  - SWOLLEN TONGUE [None]
  - TONGUE OEDEMA [None]
